FAERS Safety Report 5856589-9 (Version None)
Quarter: 2008Q3

REPORT INFORMATION
  Report Type: 
  Country: None (occurrence: None)
  Receive Date: 20080825
  Receipt Date: 20080819
  Transmission Date: 20090109
  Serious: Yes (Hospitalization)
  Sender: FDA-Public Use
  Company Number: FR-MERCK-0808USA04107

PATIENT
  Age: 72 Year
  Sex: Female

DRUGS (3)
  1. MODURETIC 5-50 [Suspect]
     Indication: HYPERTENSION
     Route: 048
     Dates: end: 20080730
  2. ASPIRIN [Concomitant]
     Route: 065
  3. LOPRESSOR [Concomitant]
     Route: 065

REACTIONS (3)
  - HYPOKALAEMIA [None]
  - LOSS OF CONSCIOUSNESS [None]
  - MALAISE [None]
